FAERS Safety Report 9283666 (Version 2)
Quarter: 2013Q2

REPORT INFORMATION
  Report Type: Spontaneous
  Country: GB (occurrence: None)
  Receive Date: 20130506
  Receipt Date: 20130507
  Transmission Date: 20140414
  Serious: Yes (Other)
  Sender: FDA-Public Use
  Company Number: AUR-APL-2013-03591

PATIENT
  Age: 49 Year
  Sex: Female

DRUGS (4)
  1. METFORMIN (METFORMIN) [Suspect]
     Indication: DIABETES MELLITUS
  2. BYETTA [Suspect]
     Indication: DIABETES MELLITUS
  3. INSULIN LISPRO (INSULIN LISPRO) [Suspect]
     Indication: DIABETES MELLITUS
     Dosage: 3 DOSAGES FORMS (1 DOSAGE FORMS, 3 IN 1 D)
     Route: 058
  4. LANTUS [Suspect]
     Indication: DIABETES MELLITUS

REACTIONS (2)
  - Cerebrovascular accident [None]
  - Memory impairment [None]
